FAERS Safety Report 13154132 (Version 1)
Quarter: 2017Q1

REPORT INFORMATION
  Report Type: Spontaneous
  Country: US (occurrence: US)
  Receive Date: 20170125
  Receipt Date: 20170125
  Transmission Date: 20170428
  Serious: No
  Sender: FDA-Public Use
  Company Number: None

PATIENT
  Age: 60 Year
  Sex: Male

DRUGS (2)
  1. SUTENT [Suspect]
     Active Substance: SUNITINIB MALATE
     Indication: RENAL CANCER
     Route: 048
     Dates: start: 20161012, end: 20170125
  2. SUTENT [Suspect]
     Active Substance: SUNITINIB MALATE
     Indication: METASTASIS
     Route: 048
     Dates: start: 20161012, end: 20170125

REACTIONS (1)
  - Dizziness [None]

NARRATIVE: CASE EVENT DATE: 20170125
